FAERS Safety Report 9601589 (Version 2)
Quarter: 2014Q1

REPORT INFORMATION
  Report Type: Spontaneous
  Country: CA (occurrence: None)
  Receive Date: 20131002
  Receipt Date: 20140207
  Transmission Date: 20141002
  Serious: Yes (Death, Hospitalization)
  Sender: FDA-Public Use
  Company Number: AUR-APL-2013-07971

PATIENT
  Age: 85 Year
  Sex: Male

DRUGS (8)
  1. GABAPENTIN [Suspect]
     Indication: POST HERPETIC NEURALGIA
     Dosage: 300 MG (100 MG, 3 IN 1 D), ORAL
     Route: 048
     Dates: start: 20130812, end: 20130815
  2. BISOPROLOL (BISOPROLOL] [Concomitant]
  3. CANDESARTAN [CANDESARTAN] [Concomitant]
  4. CO-CODAMOL (PANADEINE CO) [Concomitant]
  5. FENOFIBRATE (FENOFIBRATE) (FENOFIBRATE) [Concomitant]
  6. PERHEXILINE (PERHEXILINE) [Concomitant]
  7. SPIRONOLACTONE (SPIRONOLACTONE) [Concomitant]
  8. WARFARIN (WARFARIN) [Concomitant]

REACTIONS (9)
  - Hallucination, visual [None]
  - Confusional state [None]
  - Tremor [None]
  - Fall [None]
  - Infection [None]
  - Pneumonia [None]
  - Multi-organ failure [None]
  - Ischaemic cardiomyopathy [None]
  - Renal failure chronic [None]
